FAERS Safety Report 18556583 (Version 1)
Quarter: 2020Q4

REPORT INFORMATION
  Report Type: Spontaneous
  Country: US (occurrence: US)
  Receive Date: 20201128
  Receipt Date: 20201128
  Transmission Date: 20210114
  Serious: No
  Sender: FDA-Public Use
  Company Number: US-SA-2020SA341352

PATIENT

DRUGS (1)
  1. DUPIXENT [Suspect]
     Active Substance: DUPILUMAB
     Indication: DERMATITIS ATOPIC
     Dosage: 300MG/2ML QOW
     Route: 058
     Dates: start: 20200904

REACTIONS (3)
  - Dermatitis atopic [Unknown]
  - Product use issue [Unknown]
  - Dry skin [Unknown]

NARRATIVE: CASE EVENT DATE: 2020
